FAERS Safety Report 7450185-8 (Version None)
Quarter: 2011Q2

REPORT INFORMATION
  Report Type: 
  Country: None (occurrence: None)
  Receive Date: 20110428
  Receipt Date: 20110428
  Transmission Date: 20111010
  Serious: No
  Sender: FDA-Public Use
  Company Number: None

PATIENT
  Age: 58 Year
  Sex: Male
  Weight: 138.3471 kg

DRUGS (2)
  1. TAMSULOSIN HCL [Suspect]
     Indication: NEPHROLITHIASIS
     Dosage: 1 CAPSULE DAILY PO
     Route: 048
     Dates: start: 20101201, end: 20101201
  2. FLOMAX [Suspect]
     Indication: PROSTATOMEGALY
     Dosage: 1 CAPSULE DAILY PO
     Route: 048
     Dates: start: 20091001, end: 20091101

REACTIONS (1)
  - MALE ORGASMIC DISORDER [None]
